FAERS Safety Report 10936944 (Version 2)
Quarter: 2015Q2

REPORT INFORMATION
  Report Type: Spontaneous
  Country: US (occurrence: US)
  Receive Date: 20150321
  Receipt Date: 20150525
  Transmission Date: 20150821
  Serious: Yes (Other)
  Sender: FDA-Public Use
  Company Number: US-JNJFOC-20130805200

PATIENT
  Age: 53 Year
  Sex: Female

DRUGS (10)
  1. CELEBREX [Suspect]
     Active Substance: CELECOXIB
     Indication: ANTIINFLAMMATORY THERAPY
     Route: 048
     Dates: start: 20110309
  2. CODEINE [Suspect]
     Active Substance: CODEINE
     Indication: PRODUCT USED FOR UNKNOWN INDICATION
     Route: 065
  3. CELEBREX [Suspect]
     Active Substance: CELECOXIB
     Indication: PERIPHERAL SWELLING
     Route: 048
  4. ERYTHROMYCIN. [Suspect]
     Active Substance: ERYTHROMYCIN
     Indication: INFECTION
     Route: 065
     Dates: start: 20110309
  5. CELEBREX [Suspect]
     Active Substance: CELECOXIB
     Indication: PERIPHERAL SWELLING
     Route: 048
     Dates: start: 20110309
  6. ERYTHROMYCIN. [Suspect]
     Active Substance: ERYTHROMYCIN
     Indication: INFECTION
     Route: 065
  7. TOPAMAX [Suspect]
     Active Substance: TOPIRAMATE
     Indication: MEDICAL DIET
     Route: 048
     Dates: start: 20110309
  8. TETRACYCLINE HYDROCHLORIDE. [Suspect]
     Active Substance: TETRACYCLINE HYDROCHLORIDE
     Indication: PRODUCT USED FOR UNKNOWN INDICATION
     Route: 065
  9. TOPAMAX [Suspect]
     Active Substance: TOPIRAMATE
     Indication: MEDICAL DIET
     Route: 048
     Dates: start: 2009
  10. CELEBREX [Suspect]
     Active Substance: CELECOXIB
     Indication: ANTIINFLAMMATORY THERAPY
     Route: 048

REACTIONS (6)
  - Visual impairment [Unknown]
  - Drug hypersensitivity [Recovered/Resolved]
  - Suicidal ideation [Recovered/Resolved]
  - Alopecia [Unknown]
  - Myalgia [Recovered/Resolved]
  - Product use issue [Unknown]

NARRATIVE: CASE EVENT DATE: 2009
